FAERS Safety Report 24121717 (Version 1)
Quarter: 2024Q3

REPORT INFORMATION
  Report Type: Spontaneous
  Country: US (occurrence: US)
  Receive Date: 20240722
  Receipt Date: 20240722
  Transmission Date: 20241016
  Serious: No
  Sender: VERTEX
  Company Number: US-VERTEX PHARMACEUTICALS-2024-011516

PATIENT
  Age: 20 Year
  Sex: Female

DRUGS (1)
  1. TRIKAFTA [Suspect]
     Active Substance: ELEXACAFTOR\IVACAFTOR\TEZACAFTOR
     Indication: Cystic fibrosis
     Dosage: UNKNOWN DOSAGE REGIMEN
     Route: 048

REACTIONS (7)
  - Mood swings [Unknown]
  - Visual impairment [Unknown]
  - Anxiety [Unknown]
  - Balance disorder [Unknown]
  - Insomnia [Not Recovered/Not Resolved]
  - Renal disorder [Not Recovered/Not Resolved]
  - Depression [Unknown]
